FAERS Safety Report 7826671-5 (Version None)
Quarter: 2011Q4

REPORT INFORMATION
  Report Type: 
  Country: None (occurrence: None)
  Receive Date: 20111020
  Receipt Date: 20111011
  Transmission Date: 20120403
  Serious: Yes (Other)
  Sender: FDA-Public Use
  Company Number: US-JNJFOC-20110909458

PATIENT
  Sex: Female

DRUGS (2)
  1. DURAGESIC-100 [Suspect]
     Indication: HEAD INJURY
     Route: 062
     Dates: end: 20110101
  2. DURAGESIC-100 [Suspect]
     Indication: PAIN
     Route: 062
     Dates: start: 19980101

REACTIONS (6)
  - ANALGESIC DRUG LEVEL DECREASED [None]
  - DISABILITY [None]
  - PAIN [None]
  - FEELING ABNORMAL [None]
  - WITHDRAWAL SYNDROME [None]
  - SPEECH DISORDER [None]
